FAERS Safety Report 8132691-6 (Version None)
Quarter: 2012Q1

REPORT INFORMATION
  Report Type: 
  Country: None (occurrence: None)
  Receive Date: 20120213
  Receipt Date: 20120202
  Transmission Date: 20120608
  Serious: No
  Sender: FDA-Public Use
  Company Number: US-PFIZER INC-2012029589

PATIENT
  Age: 85 Year
  Sex: Female
  Weight: 44.444 kg

DRUGS (2)
  1. XALATAN [Suspect]
     Dosage: 1 GTT, 1X/DAY IN EACH EYE
     Route: 047
     Dates: start: 20111215, end: 20120124
  2. LATANOPROST [Suspect]

REACTIONS (4)
  - BURNING SENSATION [None]
  - MUSCLE TIGHTNESS [None]
  - ERYTHEMA [None]
  - PARAESTHESIA [None]
